FAERS Safety Report 6934537-8 (Version None)
Quarter: 2010Q3

REPORT INFORMATION
  Report Type: 
  Country: None (occurrence: None)
  Receive Date: 20100820
  Receipt Date: 20100709
  Transmission Date: 20110219
  Serious: Yes (Death, Life-Threatening, Other)
  Sender: FDA-Public Use
  Company Number: US-BAXTER-2010BH001307

PATIENT
  Age: 68 Year
  Sex: Male

DRUGS (138)
  1. HEPARIN SODIUM INJECTION [Suspect]
     Indication: STERNOTOMY
     Route: 040
     Dates: start: 20080112, end: 20080112
  2. HEPARIN SODIUM INJECTION [Suspect]
     Indication: AORTIC VALVE REPLACEMENT
     Route: 040
     Dates: start: 20080112, end: 20080112
  3. HEPARIN SODIUM INJECTION [Suspect]
     Indication: CORONARY ARTERY BYPASS
     Route: 040
     Dates: start: 20080112, end: 20080112
  4. HEPARIN SODIUM INJECTION [Suspect]
     Indication: INTRA-AORTIC BALLOON PLACEMENT
     Route: 040
     Dates: start: 20080112, end: 20080112
  5. HEPARIN SODIUM INJECTION [Suspect]
     Indication: VENOUS LIGATION
     Route: 040
     Dates: start: 20080112, end: 20080112
  6. HEPARIN SODIUM INJECTION [Suspect]
     Indication: CAROTID ENDARTERECTOMY
     Route: 040
     Dates: start: 20080112, end: 20080112
  7. HEPARIN SODIUM INJECTION [Suspect]
     Indication: ACUTE MYOCARDIAL INFARCTION
     Route: 040
     Dates: start: 20080112, end: 20080112
  8. HEPARIN SODIUM INJECTION [Suspect]
     Indication: AORTIC STENOSIS
     Route: 040
     Dates: start: 20080112, end: 20080112
  9. HEPARIN SODIUM INJECTION [Suspect]
     Indication: INTRAVENOUS CATHETER MANAGEMENT
     Route: 040
     Dates: start: 20080112, end: 20080112
  10. HEPARIN SODIUM INJECTION [Suspect]
     Route: 040
     Dates: start: 20080114, end: 20080114
  11. HEPARIN SODIUM INJECTION [Suspect]
     Route: 040
     Dates: start: 20080114, end: 20080114
  12. HEPARIN SODIUM INJECTION [Suspect]
     Route: 040
     Dates: start: 20080114, end: 20080114
  13. HEPARIN SODIUM INJECTION [Suspect]
     Route: 040
     Dates: start: 20080114, end: 20080114
  14. HEPARIN SODIUM INJECTION [Suspect]
     Route: 040
     Dates: start: 20080114, end: 20080114
  15. HEPARIN SODIUM INJECTION [Suspect]
     Route: 040
     Dates: start: 20080114, end: 20080114
  16. HEPARIN SODIUM INJECTION [Suspect]
     Route: 040
     Dates: start: 20080114, end: 20080114
  17. HEPARIN SODIUM INJECTION [Suspect]
     Route: 040
     Dates: start: 20080114, end: 20080114
  18. HEPARIN SODIUM INJECTION [Suspect]
     Route: 040
     Dates: start: 20080114, end: 20080114
  19. HEPARIN SODIUM INJECTION [Suspect]
     Route: 040
     Dates: start: 20080116, end: 20080116
  20. HEPARIN SODIUM INJECTION [Suspect]
     Route: 040
     Dates: start: 20080116, end: 20080116
  21. HEPARIN SODIUM INJECTION [Suspect]
     Route: 040
     Dates: start: 20080116, end: 20080116
  22. HEPARIN SODIUM INJECTION [Suspect]
     Route: 040
     Dates: start: 20080116, end: 20080116
  23. HEPARIN SODIUM INJECTION [Suspect]
     Route: 040
     Dates: start: 20080116, end: 20080116
  24. HEPARIN SODIUM INJECTION [Suspect]
     Route: 040
     Dates: start: 20080116, end: 20080116
  25. HEPARIN SODIUM INJECTION [Suspect]
     Route: 040
     Dates: start: 20080116, end: 20080116
  26. HEPARIN SODIUM INJECTION [Suspect]
     Route: 040
     Dates: start: 20080116, end: 20080116
  27. HEPARIN SODIUM INJECTION [Suspect]
     Route: 040
     Dates: start: 20080116, end: 20080116
  28. HEPARIN SODIUM INJECTION [Suspect]
     Route: 042
     Dates: start: 20090428, end: 20090428
  29. HEPARIN SODIUM INJECTION [Suspect]
     Route: 042
     Dates: start: 20090428, end: 20090428
  30. HEPARIN SODIUM INJECTION [Suspect]
     Route: 042
     Dates: start: 20090428, end: 20090428
  31. HEPARIN SODIUM INJECTION [Suspect]
     Route: 042
     Dates: start: 20090428, end: 20090428
  32. HEPARIN SODIUM INJECTION [Suspect]
     Route: 042
     Dates: start: 20090428, end: 20090428
  33. HEPARIN SODIUM INJECTION [Suspect]
     Route: 042
     Dates: start: 20090428, end: 20090428
  34. HEPARIN SODIUM INJECTION [Suspect]
     Route: 042
     Dates: start: 20090428, end: 20090428
  35. HEPARIN SODIUM INJECTION [Suspect]
     Route: 042
     Dates: start: 20090428, end: 20090428
  36. HEPARIN SODIUM INJECTION [Suspect]
     Route: 042
     Dates: start: 20090428, end: 20090428
  37. HEPARIN SODIUM INJECTION [Suspect]
     Route: 042
     Dates: start: 20080112, end: 20080115
  38. HEPARIN SODIUM INJECTION [Suspect]
     Route: 042
     Dates: start: 20080112, end: 20080115
  39. HEPARIN SODIUM INJECTION [Suspect]
     Route: 042
     Dates: start: 20080112, end: 20080115
  40. HEPARIN SODIUM INJECTION [Suspect]
     Route: 042
     Dates: start: 20080112, end: 20080115
  41. HEPARIN SODIUM INJECTION [Suspect]
     Route: 042
     Dates: start: 20080112, end: 20080115
  42. HEPARIN SODIUM INJECTION [Suspect]
     Route: 042
     Dates: start: 20080112, end: 20080115
  43. HEPARIN SODIUM INJECTION [Suspect]
     Route: 042
     Dates: start: 20080112, end: 20080115
  44. HEPARIN SODIUM INJECTION [Suspect]
     Route: 042
     Dates: start: 20080112, end: 20080115
  45. HEPARIN SODIUM INJECTION [Suspect]
     Route: 042
     Dates: start: 20080112, end: 20080115
  46. HEPARIN SODIUM INJECTION [Suspect]
     Route: 042
     Dates: start: 20090428, end: 20090428
  47. HEPARIN SODIUM INJECTION [Suspect]
     Route: 042
     Dates: start: 20090428, end: 20090428
  48. HEPARIN SODIUM INJECTION [Suspect]
     Route: 042
     Dates: start: 20090428, end: 20090428
  49. HEPARIN SODIUM INJECTION [Suspect]
     Route: 042
     Dates: start: 20090428, end: 20090428
  50. HEPARIN SODIUM INJECTION [Suspect]
     Route: 042
     Dates: start: 20090428, end: 20090428
  51. HEPARIN SODIUM INJECTION [Suspect]
     Route: 042
     Dates: start: 20090428, end: 20090428
  52. HEPARIN SODIUM INJECTION [Suspect]
     Route: 042
     Dates: start: 20090428, end: 20090428
  53. HEPARIN SODIUM INJECTION [Suspect]
     Route: 042
     Dates: start: 20090428, end: 20090428
  54. HEPARIN SODIUM INJECTION [Suspect]
     Route: 042
     Dates: start: 20090428, end: 20090428
  55. HEPARIN SODIUM INJECTION [Suspect]
     Route: 065
     Dates: start: 20080116, end: 20080116
  56. HEPARIN SODIUM INJECTION [Suspect]
     Route: 065
     Dates: start: 20080116, end: 20080116
  57. HEPARIN SODIUM INJECTION [Suspect]
     Route: 065
     Dates: start: 20080116, end: 20080116
  58. HEPARIN SODIUM INJECTION [Suspect]
     Route: 065
     Dates: start: 20080116, end: 20080116
  59. HEPARIN SODIUM INJECTION [Suspect]
     Route: 065
     Dates: start: 20080116, end: 20080116
  60. HEPARIN SODIUM INJECTION [Suspect]
     Route: 065
     Dates: start: 20080116, end: 20080116
  61. HEPARIN SODIUM INJECTION [Suspect]
     Route: 065
     Dates: start: 20080116, end: 20080116
  62. HEPARIN SODIUM INJECTION [Suspect]
     Route: 065
     Dates: start: 20080116, end: 20080116
  63. HEPARIN SODIUM INJECTION [Suspect]
     Route: 065
     Dates: start: 20080116, end: 20080116
  64. HEPARIN SODIUM INJECTION [Suspect]
     Route: 065
     Dates: start: 20080120, end: 20080120
  65. HEPARIN SODIUM INJECTION [Suspect]
     Route: 065
     Dates: start: 20080120, end: 20080120
  66. HEPARIN SODIUM INJECTION [Suspect]
     Route: 065
     Dates: start: 20080120, end: 20080120
  67. HEPARIN SODIUM INJECTION [Suspect]
     Route: 065
     Dates: start: 20080120, end: 20080120
  68. HEPARIN SODIUM INJECTION [Suspect]
     Route: 065
     Dates: start: 20080120, end: 20080120
  69. HEPARIN SODIUM INJECTION [Suspect]
     Route: 065
     Dates: start: 20080120, end: 20080120
  70. HEPARIN SODIUM INJECTION [Suspect]
     Route: 065
     Dates: start: 20080120, end: 20080120
  71. HEPARIN SODIUM INJECTION [Suspect]
     Route: 065
     Dates: start: 20080120, end: 20080120
  72. HEPARIN SODIUM INJECTION [Suspect]
     Route: 065
     Dates: start: 20080120, end: 20080120
  73. HEPARIN SODIUM INJECTION [Suspect]
     Route: 065
     Dates: start: 20080208, end: 20080208
  74. HEPARIN SODIUM INJECTION [Suspect]
     Route: 065
     Dates: start: 20080208, end: 20080208
  75. HEPARIN SODIUM INJECTION [Suspect]
     Route: 065
     Dates: start: 20080208, end: 20080208
  76. HEPARIN SODIUM INJECTION [Suspect]
     Route: 065
     Dates: start: 20080208, end: 20080208
  77. HEPARIN SODIUM INJECTION [Suspect]
     Route: 065
     Dates: start: 20080208, end: 20080208
  78. HEPARIN SODIUM INJECTION [Suspect]
     Route: 065
     Dates: start: 20080208, end: 20080208
  79. HEPARIN SODIUM INJECTION [Suspect]
     Route: 065
     Dates: start: 20080208, end: 20080208
  80. HEPARIN SODIUM INJECTION [Suspect]
     Route: 065
     Dates: start: 20080208, end: 20080208
  81. HEPARIN SODIUM INJECTION [Suspect]
     Route: 065
     Dates: start: 20080208, end: 20080208
  82. HEPARIN SODIUM INJECTION [Suspect]
     Route: 042
     Dates: start: 20080116, end: 20080116
  83. HEPARIN SODIUM INJECTION [Suspect]
     Route: 042
     Dates: start: 20080116, end: 20080116
  84. HEPARIN SODIUM INJECTION [Suspect]
     Route: 042
     Dates: start: 20080116, end: 20080116
  85. HEPARIN SODIUM INJECTION [Suspect]
     Route: 042
     Dates: start: 20080116, end: 20080116
  86. HEPARIN SODIUM INJECTION [Suspect]
     Route: 042
     Dates: start: 20080116, end: 20080116
  87. HEPARIN SODIUM INJECTION [Suspect]
     Route: 042
     Dates: start: 20080116, end: 20080116
  88. HEPARIN SODIUM INJECTION [Suspect]
     Route: 042
     Dates: start: 20080116, end: 20080116
  89. HEPARIN SODIUM INJECTION [Suspect]
     Route: 042
     Dates: start: 20080116, end: 20080116
  90. HEPARIN SODIUM INJECTION [Suspect]
     Route: 042
     Dates: start: 20080116, end: 20080116
  91. HEPARIN SODIUM INJECTION [Suspect]
     Route: 042
     Dates: start: 20080116, end: 20080116
  92. HEPARIN SODIUM INJECTION [Suspect]
     Route: 042
     Dates: start: 20080116, end: 20080116
  93. HEPARIN SODIUM INJECTION [Suspect]
     Route: 042
     Dates: start: 20080116, end: 20080116
  94. HEPARIN SODIUM INJECTION [Suspect]
     Route: 042
     Dates: start: 20080116, end: 20080116
  95. HEPARIN SODIUM INJECTION [Suspect]
     Route: 042
     Dates: start: 20080116, end: 20080116
  96. HEPARIN SODIUM INJECTION [Suspect]
     Route: 042
     Dates: start: 20080116, end: 20080116
  97. HEPARIN SODIUM INJECTION [Suspect]
     Route: 042
     Dates: start: 20080116, end: 20080116
  98. HEPARIN SODIUM INJECTION [Suspect]
     Route: 042
     Dates: start: 20080116, end: 20080116
  99. HEPARIN SODIUM INJECTION [Suspect]
     Route: 042
     Dates: start: 20080116, end: 20080116
  100. HEPARIN SODIUM INJECTION [Suspect]
     Route: 042
     Dates: start: 20080120, end: 20080120
  101. HEPARIN SODIUM INJECTION [Suspect]
     Route: 042
     Dates: start: 20080120, end: 20080120
  102. HEPARIN SODIUM INJECTION [Suspect]
     Route: 042
     Dates: start: 20080120, end: 20080120
  103. HEPARIN SODIUM INJECTION [Suspect]
     Route: 042
     Dates: start: 20080120, end: 20080120
  104. HEPARIN SODIUM INJECTION [Suspect]
     Route: 042
     Dates: start: 20080120, end: 20080120
  105. HEPARIN SODIUM INJECTION [Suspect]
     Route: 042
     Dates: start: 20080120, end: 20080120
  106. HEPARIN SODIUM INJECTION [Suspect]
     Route: 042
     Dates: start: 20080120, end: 20080120
  107. HEPARIN SODIUM INJECTION [Suspect]
     Route: 042
     Dates: start: 20080120, end: 20080120
  108. HEPARIN SODIUM INJECTION [Suspect]
     Route: 042
     Dates: start: 20080120, end: 20080120
  109. HEPARIN SODIUM 1,000 UNITS AND SODIUM CHLORIDE 0.9% [Suspect]
     Indication: PRODUCT USED FOR UNKNOWN INDICATION
     Route: 042
     Dates: start: 20090428, end: 20090428
  110. LASIX [Concomitant]
     Indication: PRODUCT USED FOR UNKNOWN INDICATION
     Route: 065
  111. PLAVIX [Concomitant]
     Indication: PRODUCT USED FOR UNKNOWN INDICATION
     Route: 065
  112. COREG [Concomitant]
     Indication: PRODUCT USED FOR UNKNOWN INDICATION
     Route: 065
  113. CRESTOR [Concomitant]
     Indication: PRODUCT USED FOR UNKNOWN INDICATION
     Route: 065
  114. RAMIPRIL [Concomitant]
     Indication: PRODUCT USED FOR UNKNOWN INDICATION
     Route: 065
  115. GLUCOVANCE [Concomitant]
     Indication: PRODUCT USED FOR UNKNOWN INDICATION
     Route: 065
  116. IMDUR [Concomitant]
     Indication: PRODUCT USED FOR UNKNOWN INDICATION
     Route: 065
  117. PANTOPRAZOLE [Concomitant]
     Indication: PRODUCT USED FOR UNKNOWN INDICATION
     Route: 065
  118. ALBUTEROL SULFATE [Concomitant]
     Indication: PRODUCT USED FOR UNKNOWN INDICATION
     Route: 065
  119. MAGNESIUM HYDROXIDE TAB [Concomitant]
     Indication: PRODUCT USED FOR UNKNOWN INDICATION
     Route: 065
  120. METOPROLOL TARTRATE [Concomitant]
     Indication: PRODUCT USED FOR UNKNOWN INDICATION
     Route: 065
  121. NORMAL SALINE [Concomitant]
     Indication: PRODUCT USED FOR UNKNOWN INDICATION
     Route: 065
  122. ONDANSETRON HYDROCHLORIDE [Concomitant]
     Indication: PRODUCT USED FOR UNKNOWN INDICATION
     Route: 065
  123. ACETAMINOPHEN W/ PROPOXYPHENE HCL [Concomitant]
     Indication: PRODUCT USED FOR UNKNOWN INDICATION
     Route: 065
  124. OXYCODONE HCL [Concomitant]
     Indication: PRODUCT USED FOR UNKNOWN INDICATION
     Route: 065
  125. PROPOFOL [Concomitant]
     Indication: PRODUCT USED FOR UNKNOWN INDICATION
     Route: 065
  126. MEPERIDINE HCL [Concomitant]
     Indication: PRODUCT USED FOR UNKNOWN INDICATION
     Route: 065
  127. POTASSIUM CHLORIDE [Concomitant]
     Indication: PRODUCT USED FOR UNKNOWN INDICATION
     Route: 065
  128. NITROGLYCERIN [Concomitant]
     Indication: PRODUCT USED FOR UNKNOWN INDICATION
     Route: 065
  129. LANSOPRAZOLE [Concomitant]
     Indication: PRODUCT USED FOR UNKNOWN INDICATION
     Route: 065
  130. AMIODARONE HYDROCHLORIDE [Concomitant]
     Indication: PRODUCT USED FOR UNKNOWN INDICATION
     Route: 065
  131. DOPAMINE HCL [Concomitant]
     Indication: PRODUCT USED FOR UNKNOWN INDICATION
     Route: 065
  132. NYSTATIN [Concomitant]
     Indication: PRODUCT USED FOR UNKNOWN INDICATION
     Route: 065
  133. INSULIN [Concomitant]
     Indication: PRODUCT USED FOR UNKNOWN INDICATION
     Route: 065
  134. EPINEPHRINE [Concomitant]
     Indication: PRODUCT USED FOR UNKNOWN INDICATION
     Route: 042
  135. NOREPINEPHRINE BITARTRATE [Concomitant]
     Indication: PRODUCT USED FOR UNKNOWN INDICATION
     Route: 042
  136. SODIUM NITROPRUSSIDE [Concomitant]
     Indication: PRODUCT USED FOR UNKNOWN INDICATION
     Route: 042
  137. AMIODARONE [Concomitant]
     Indication: PRODUCT USED FOR UNKNOWN INDICATION
     Route: 042
  138. COUMADIN [Concomitant]
     Indication: PRODUCT USED FOR UNKNOWN INDICATION
     Route: 048

REACTIONS (29)
  - ANAEMIA [None]
  - APHASIA [None]
  - ARRHYTHMIA [None]
  - CARDIAC TAMPONADE [None]
  - CHILLS [None]
  - CORONARY ARTERY DISEASE [None]
  - DEEP VEIN THROMBOSIS [None]
  - DYSPNOEA [None]
  - FLUID OVERLOAD [None]
  - HAEMATOMA [None]
  - HAEMODYNAMIC INSTABILITY [None]
  - HEMIPARESIS [None]
  - HEPARIN-INDUCED THROMBOCYTOPENIA [None]
  - HYPONATRAEMIA [None]
  - HYPOTENSION [None]
  - ISCHAEMIC CARDIOMYOPATHY [None]
  - MENTAL STATUS CHANGES [None]
  - NAUSEA [None]
  - OEDEMA PERIPHERAL [None]
  - PLEURAL EFFUSION [None]
  - POST PROCEDURAL HAEMORRHAGE [None]
  - RESPIRATORY FAILURE [None]
  - THROMBOSIS [None]
  - TRANSIENT ISCHAEMIC ATTACK [None]
  - UNRESPONSIVE TO STIMULI [None]
  - VENTRICULAR FIBRILLATION [None]
  - VENTRICULAR TACHYCARDIA [None]
  - WHEEZING [None]
  - WOUND SECRETION [None]
